FAERS Safety Report 4344692-4 (Version None)
Quarter: 2004Q2

REPORT INFORMATION
  Report Type: 
  Country: None (occurrence: None)
  Receive Date: 20040419
  Receipt Date: 20040405
  Transmission Date: 20050107
  Serious: Yes (Hospitalization)
  Sender: FDA-Public Use
  Company Number: UK071576

PATIENT
  Age: 16 Year
  Sex: Female

DRUGS (1)
  1. ARANESP [Suspect]
     Indication: DIALYSIS
     Dosage: IV
     Route: 042
     Dates: start: 20040226, end: 20040303

REACTIONS (4)
  - CARDIOMYOPATHY [None]
  - CONVULSION [None]
  - ENCEPHALOPATHY [None]
  - HYPERTENSION [None]
